FAERS Safety Report 5441312-2 (Version None)
Quarter: 2007Q3

REPORT INFORMATION
  Report Type: 
  Country: None (occurrence: None)
  Receive Date: 20070903
  Receipt Date: 20070822
  Transmission Date: 20080115
  Serious: Yes (Other)
  Sender: FDA-Public Use
  Company Number: PHHO2007MX14083

PATIENT
  Age: 76 Year
  Sex: Female

DRUGS (3)
  1. VENASTAT [Concomitant]
     Dosage: 1 TABLET PER DAY
     Dates: start: 20060101
  2. GINKGO BILOBA [Concomitant]
     Dosage: 1 TABLET PER DAY
     Dates: start: 20060101
  3. RECLAST [Suspect]
     Indication: OSTEOPOROSIS
     Dosage: 5 MG,
     Route: 042
     Dates: start: 20070601

REACTIONS (6)
  - ABASIA [None]
  - BALANCE DISORDER [None]
  - DIARRHOEA [None]
  - HEADACHE [None]
  - PAIN [None]
  - VOMITING [None]
